FAERS Safety Report 8087954-X (Version None)
Quarter: 2012Q1

REPORT INFORMATION
  Report Type: 
  Country: None (occurrence: None)
  Receive Date: 20120130
  Receipt Date: 20111205
  Transmission Date: 20120608
  Serious: Yes (Other)
  Sender: FDA-Public Use
  Company Number: US-ASTRAZENECA-2011SE73581

PATIENT
  Age: 87 Year
  Sex: Female
  Weight: 70.3 kg

DRUGS (15)
  1. CRESTOR [Suspect]
     Route: 048
  2. THYRIDIUM [Concomitant]
  3. TYLENOL PLUS CODIEN [Concomitant]
     Dosage: 1-2 TABLET Q4-6H
  4. GRAMALIN [Concomitant]
  5. POTASSIUM CHLORIDE [Concomitant]
     Dosage: BID
  6. CRESTOR [Suspect]
     Route: 048
  7. PREDNISONE TAB [Concomitant]
  8. TRICOR [Concomitant]
  9. LASIX [Concomitant]
  10. NITROGLYCERIN [Concomitant]
     Dosage: PRN
  11. PRILOSEC OTC [Concomitant]
  12. PLAVIX [Concomitant]
  13. CRESTOR [Suspect]
     Indication: BLOOD CHOLESTEROL
     Route: 048
  14. NIACALAN NASAL SPRAY [Concomitant]
     Dosage: EVERY OTHER DAY AT NIGHT
  15. ZENOKOTE PO [Concomitant]

REACTIONS (7)
  - NECK PAIN [None]
  - LIMB INJURY [None]
  - MYALGIA [None]
  - MUSCULOSKELETAL CHEST PAIN [None]
  - PAIN [None]
  - MUSCULOSKELETAL STIFFNESS [None]
  - MUSCLE SPASMS [None]
